FAERS Safety Report 24954561 (Version 1)
Quarter: 2025Q1

REPORT INFORMATION
  Report Type: Other
  Country: CA (occurrence: CA)
  Receive Date: 20250211
  Receipt Date: 20250211
  Transmission Date: 20250408
  Serious: Yes (Hospitalization, Other)
  Sender: APOTEX
  Company Number: CA-APOTEX-2025AP001811

PATIENT
  Age: 29 Year
  Sex: Female

DRUGS (1)
  1. LETROZOLE [Suspect]
     Active Substance: LETROZOLE
     Indication: Ovarian cancer
     Route: 065

REACTIONS (4)
  - Malignant neoplasm progression [Unknown]
  - Ovarian cancer [Unknown]
  - Abdominal pain [Unknown]
  - Nausea [Unknown]
